FAERS Safety Report 5135039-4 (Version None)
Quarter: 2006Q4

REPORT INFORMATION
  Report Type: 
  Country: None (occurrence: None)
  Receive Date: 20060831
  Receipt Date: 20060727
  Transmission Date: 20070319
  Serious: No
  Sender: FDA-Public Use
  Company Number: 2006-BP-08695BP

PATIENT
  Age: 74 Year
  Sex: Male

DRUGS (3)
  1. SPIRIVA [Suspect]
     Indication: ASTHMA
     Dosage: 18 MCG (18 MCG QD),IH
     Route: 055
     Dates: start: 20060201
  2. SEREVENT [Concomitant]
  3. ALBUTEROL [Concomitant]

REACTIONS (1)
  - PLATELET COUNT DECREASED [None]
